FAERS Safety Report 4420844-X (Version None)
Quarter: 2004Q3

REPORT INFORMATION
  Report Type: 
  Country: None (occurrence: None)
  Receive Date: 20040804
  Receipt Date: 20040720
  Transmission Date: 20050211
  Serious: Yes (Hospitalization)
  Sender: FDA-Public Use
  Company Number: 2004EU001412

PATIENT
  Age: 42 Year
  Sex: Male

DRUGS (3)
  1. (TACROLIMUS)   (FK506)  CAPSULE [Suspect]
     Indication: RENAL TRANSPLANT
     Dosage: 8.00 MG, ORAL
     Route: 048
     Dates: start: 20040330
  2. CELLCEPT [Concomitant]
  3. PREDNISOLONE [Concomitant]

REACTIONS (2)
  - CLOSTRIDIAL INFECTION [None]
  - RENAL ABSCESS [None]
